FAERS Safety Report 7394635-4 (Version None)
Quarter: 2011Q1

REPORT INFORMATION
  Report Type: 
  Country: None (occurrence: None)
  Receive Date: 20110331
  Receipt Date: 20110331
  Transmission Date: 20110831
  Serious: Yes (Other)
  Sender: FDA-Public Use
  Company Number: None

PATIENT
  Sex: Female
  Weight: 77.1115 kg

DRUGS (1)
  1. RANITIDINE [Suspect]
     Indication: GASTROOESOPHAGEAL REFLUX DISEASE
     Dosage: .75 MG 2 X'S A DAY PO
     Route: 048
     Dates: start: 20110320, end: 20110320

REACTIONS (6)
  - FLUSHING [None]
  - OESOPHAGEAL PAIN [None]
  - BLOOD PRESSURE INCREASED [None]
  - DYSPEPSIA [None]
  - EYE IRRITATION [None]
  - PRODUCT SUBSTITUTION ISSUE [None]
